FAERS Safety Report 13509870 (Version 3)
Quarter: 2018Q3

REPORT INFORMATION
  Report Type: Spontaneous
  Country: US (occurrence: US)
  Receive Date: 20170503
  Receipt Date: 20180924
  Transmission Date: 20181010
  Serious: No
  Sender: FDA-Public Use
  Company Number: US-SA-2017SA048522

PATIENT
  Age: 67 Year
  Sex: Male

DRUGS (12)
  1. METOPROLOL TARTRATE. [Concomitant]
     Active Substance: METOPROLOL TARTRATE
     Dosage: UNK UNK,UNK
     Route: 065
  2. IBUPROFEN. [Concomitant]
     Active Substance: IBUPROFEN
     Dosage: UNK UNK,UNK
     Route: 065
  3. OXYCODONE [Concomitant]
     Active Substance: OXYCODONE
  4. HYDROCODONE BITARTRATE AND ACETAMINOPHEN [Concomitant]
     Active Substance: ACETAMINOPHEN\HYDROCODONE BITARTRATE
     Dosage: UNK UNK,UNK
     Route: 065
  5. LORAZEPAM. [Concomitant]
     Active Substance: LORAZEPAM
     Dosage: UNK UNK,UNK
     Route: 065
  6. PRALUENT [Suspect]
     Active Substance: ALIROCUMAB
     Indication: ARTERIOSCLEROSIS
     Dosage: 75 MG, QOW
     Route: 065
     Dates: start: 20161013
  7. AMLODIPINE [Concomitant]
     Active Substance: AMLODIPINE BESYLATE
     Dosage: UNK UNK,UNK
     Route: 065
  8. TERBINAFINE. [Concomitant]
     Active Substance: TERBINAFINE
     Dosage: 250 MG,UNK
     Route: 065
  9. ISOSORBIDE DINITRATE. [Concomitant]
     Active Substance: ISOSORBIDE DINITRATE
     Dosage: UNK UNK,UNK
     Route: 065
  10. MUPIROCIN. [Concomitant]
     Active Substance: MUPIROCIN
     Dosage: UNK UNK,UNK
     Route: 065
  11. PRALUENT [Suspect]
     Active Substance: ALIROCUMAB
     Indication: ARTERIOSCLEROSIS
     Dosage: 75 MG,QOW
     Route: 058
     Dates: start: 20161013
  12. ZETIA [Concomitant]
     Active Substance: EZETIMIBE
     Dosage: 10 MG,UNK
     Route: 065

REACTIONS (5)
  - Amnesia [Not Recovered/Not Resolved]
  - Myalgia [Not Recovered/Not Resolved]
  - Cough [Not Recovered/Not Resolved]
  - Pain [Not Recovered/Not Resolved]
  - Arthralgia [Not Recovered/Not Resolved]

NARRATIVE: CASE EVENT DATE: 20170120
